FAERS Safety Report 5913721-6 (Version None)
Quarter: 2008Q4

REPORT INFORMATION
  Report Type: 
  Country: None (occurrence: None)
  Receive Date: 20081009
  Receipt Date: 20080929
  Transmission Date: 20090506
  Serious: Yes (Other)
  Sender: FDA-Public Use
  Company Number: US-GENENTECH-266989

PATIENT
  Sex: Female

DRUGS (1)
  1. NUTROPIN AQ [Suspect]
     Indication: SMALL FOR DATES BABY
     Dosage: 0.6 MG, QHS
     Route: 058
     Dates: start: 20080410

REACTIONS (2)
  - PYREXIA [None]
  - VOMITING [None]
